FAERS Safety Report 10042005 (Version 1)
Quarter: 2014Q1

REPORT INFORMATION
  Report Type: Spontaneous
  Country: BG (occurrence: BG)
  Receive Date: 20140327
  Receipt Date: 20140327
  Transmission Date: 20141002
  Serious: Yes (Life-Threatening)
  Sender: FDA-Public Use
  Company Number: BG-BRISTOL-MYERS SQUIBB COMPANY-20542700

PATIENT
  Age: 68 Year
  Sex: Male

DRUGS (1)
  1. KOMBOGLYZE [Suspect]
     Dosage: 1DF:2.5MG/1000MG

REACTIONS (3)
  - Ketoacidosis [Recovered/Resolved]
  - Pain in extremity [Recovered/Resolved]
  - Paraesthesia [Recovered/Resolved]
